FAERS Safety Report 25345589 (Version 1)
Quarter: 2025Q2

REPORT INFORMATION
  Report Type: Spontaneous
  Country: IT (occurrence: IT)
  Receive Date: 20250522
  Receipt Date: 20250522
  Transmission Date: 20250716
  Serious: Yes (Other)
  Sender: AVYXA HOLDINGS, LLC
  Company Number: IT-AVYXA HOLDINGS, LLC-2025AVY000028

PATIENT
  Age: 56 Year
  Sex: Female

DRUGS (1)
  1. FULVESTRANT [Suspect]
     Active Substance: FULVESTRANT
     Indication: Hormone receptor positive breast cancer
     Route: 065

REACTIONS (1)
  - Recall phenomenon [Recovering/Resolving]
